FAERS Safety Report 4496583-6 (Version None)
Quarter: 2004Q4

REPORT INFORMATION
  Report Type: 
  Country: None (occurrence: None)
  Receive Date: 20041109
  Receipt Date: 20040714
  Transmission Date: 20050328
  Serious: Yes (Other)
  Sender: FDA-Public Use
  Company Number: 200416971GDDC

PATIENT
  Age: 57 Year
  Sex: Male

DRUGS (8)
  1. LEFLUNOMIDE [Suspect]
     Indication: RHEUMATOID ARTHRITIS
     Route: 048
     Dates: start: 20031201
  2. PREDNISOLONE [Suspect]
     Indication: RHEUMATOID ARTHRITIS
     Route: 048
     Dates: start: 20030101
  3. NAPROXEN [Suspect]
     Dosage: DOSE: UNK
  4. BENDROFLUAZIDE [Concomitant]
  5. OMEPRAZOLE [Concomitant]
  6. ATENOLOL [Concomitant]
  7. FOLIC ACID [Concomitant]
  8. AMITRIPTYLINE HCL [Concomitant]

REACTIONS (7)
  - DRUG INTERACTION [None]
  - DUODENAL ULCER [None]
  - DYSPHAGIA [None]
  - ECZEMA [None]
  - FURUNCLE [None]
  - HYPOACUSIS [None]
  - STAPHYLOCOCCAL INFECTION [None]
